FAERS Safety Report 7310315-5 (Version None)
Quarter: 2011Q1

REPORT INFORMATION
  Report Type: 
  Country: None (occurrence: None)
  Receive Date: 20110224
  Receipt Date: 20110128
  Transmission Date: 20110831
  Serious: No
  Sender: FDA-Public Use
  Company Number: US-B.I. PHARMACEUTICALS,INC./RIDGEFIELD-2011-BP-00307BP

PATIENT
  Sex: Female

DRUGS (8)
  1. ACTOS [Concomitant]
     Indication: DIABETES MELLITUS
  2. FEXOFENADINE [Concomitant]
  3. LANTUS [Concomitant]
     Indication: DIABETES MELLITUS
  4. BYETTA [Concomitant]
     Indication: DIABETES MELLITUS
  5. METFORMIN HCL [Concomitant]
     Indication: DIABETES MELLITUS
  6. SIMVASTATIN [Concomitant]
     Indication: BLOOD CHOLESTEROL INCREASED
  7. PRADAXA [Suspect]
     Indication: ATRIAL FIBRILLATION
     Dosage: 300 MG
     Route: 048
     Dates: start: 20101221
  8. BUSPIRONE [Concomitant]

REACTIONS (3)
  - BLISTER [None]
  - URTICARIA [None]
  - WOUND DRAINAGE [None]
